FAERS Safety Report 5522856-1 (Version None)
Quarter: 2007Q4

REPORT INFORMATION
  Report Type: 
  Country: None (occurrence: None)
  Receive Date: 20071119
  Receipt Date: 20071119
  Transmission Date: 20080405
  Serious: Yes (Life-Threatening, Hospitalization, Disabling, Other)
  Sender: FDA-Public Use
  Company Number: None

PATIENT
  Age: 32 Year
  Sex: Female
  Weight: 86.1834 kg

DRUGS (1)
  1. PHENYLEPHRENE 10MG. PER CC GENERIC LABEL VERY SIMILAR [Suspect]
     Indication: WRONG DRUG ADMINISTERED
     Dosage: 20 MG. IV ERROR IV BOLUS
     Route: 040
     Dates: start: 19930209, end: 19930209

REACTIONS (11)
  - AMNESIA [None]
  - BREAKTHROUGH PAIN [None]
  - CARDIO-RESPIRATORY ARREST [None]
  - CEREBRAL ATROPHY [None]
  - HEADACHE [None]
  - MEDICATION ERROR [None]
  - METABOLIC DISORDER [None]
  - NEUROMYOPATHY [None]
  - OVERDOSE [None]
  - POST-TRAUMATIC STRESS DISORDER [None]
  - WRONG DRUG ADMINISTERED [None]
